FAERS Safety Report 8318261-5 (Version None)
Quarter: 2012Q2

REPORT INFORMATION
  Report Type: 
  Country: None (occurrence: None)
  Receive Date: 20120427
  Receipt Date: 20120424
  Transmission Date: 20120825
  Serious: No
  Sender: FDA-Public Use
  Company Number: US-PFIZER INC-2012102195

PATIENT
  Sex: Female
  Weight: 63.492 kg

DRUGS (3)
  1. DILANTIN [Suspect]
     Indication: LOSS OF CONSCIOUSNESS
     Dosage: 100 MG, 2X/DAY
     Route: 048
  2. NORVASC [Concomitant]
     Indication: HYPERTENSION
     Dosage: 2.5 MG, DAILY
     Route: 048
  3. CRESTOR [Concomitant]
     Indication: BLOOD CHOLESTEROL ABNORMAL
     Dosage: 5 MG, DAILY
     Route: 048

REACTIONS (1)
  - DYSGEUSIA [None]
